FAERS Safety Report 4288045-6 (Version None)
Quarter: 2004Q1

REPORT INFORMATION
  Report Type: 
  Country: None (occurrence: None)
  Receive Date: 20040202
  Receipt Date: 20030925
  Transmission Date: 20041129
  Serious: Yes (Hospitalization, Other)
  Sender: FDA-Public Use
  Company Number: 137640USA

PATIENT
  Age: 40 Year
  Sex: Male

DRUGS (2)
  1. COPAXONE [Suspect]
     Indication: MULTIPLE SCLEROSIS
     Dates: start: 20030922, end: 20030924
  2. STEROIDS [Concomitant]

REACTIONS (1)
  - MYOCARDIAL INFARCTION [None]
